FAERS Safety Report 9480982 (Version 1)
Quarter: 2013Q3

REPORT INFORMATION
  Report Type: Spontaneous
  Country: US (occurrence: US)
  Receive Date: 20130828
  Receipt Date: 20130828
  Transmission Date: 20140515
  Serious: Yes (Other)
  Sender: FDA-Public Use
  Company Number: US-AMGEN-KDL146455

PATIENT
  Age: 66 Year
  Sex: Female

DRUGS (1)
  1. ENBREL [Suspect]
     Indication: RHEUMATOID ARTHRITIS
     Dosage: 25 MG, 2 TIMES/WK
     Route: 058
     Dates: start: 20040115, end: 200411

REACTIONS (10)
  - Thyroid mass [Unknown]
  - Cyst [Unknown]
  - Abdominal pain upper [Unknown]
  - Pain [Unknown]
  - Dyspepsia [Unknown]
  - Cataract [Unknown]
  - Local swelling [Unknown]
  - Alopecia [Unknown]
  - Weight increased [Unknown]
  - Skin discolouration [Unknown]
